FAERS Safety Report 9259343 (Version 1)
Quarter: 2013Q2

REPORT INFORMATION
  Report Type: Report from Study
  Country: FR (occurrence: FR)
  Receive Date: 20130427
  Receipt Date: 20130427
  Transmission Date: 20140414
  Serious: Yes (Hospitalization)
  Sender: FDA-Public Use
  Company Number: FR-ROCHE-1218028

PATIENT
  Age: 73 Year
  Sex: Female
  Weight: 46 kg

DRUGS (5)
  1. TOCILIZUMAB [Suspect]
     Indication: RHEUMATOID ARTHRITIS
     Route: 041
     Dates: start: 20120301, end: 20130211
  2. DOLIPRANE [Concomitant]
     Indication: RHEUMATOID ARTHRITIS
     Route: 048
  3. IXPRIM [Concomitant]
     Indication: RHEUMATOID ARTHRITIS
     Route: 048
  4. TAVANIC [Concomitant]
     Route: 048
  5. RIFAMPICINE [Concomitant]
     Route: 048

REACTIONS (1)
  - Osteoarthritis [Not Recovered/Not Resolved]
